FAERS Safety Report 17148426 (Version 2)
Quarter: 2020Q1

REPORT INFORMATION
  Report Type: Spontaneous
  Country: NO (occurrence: NO)
  Receive Date: 20191212
  Receipt Date: 20200113
  Transmission Date: 20200409
  Serious: Yes (Hospitalization, Other)
  Sender: FDA-Public Use
  Company Number: NO-INCYTE CORPORATION-2019IN012272

PATIENT

DRUGS (1)
  1. JAKAVI [Suspect]
     Active Substance: RUXOLITINIB
     Indication: MYELOFIBROSIS
     Dosage: UNK
     Route: 065
     Dates: end: 20191230

REACTIONS (8)
  - Retinitis [Unknown]
  - Oesophageal candidiasis [Unknown]
  - Hyponatraemia [Recovering/Resolving]
  - Inappropriate antidiuretic hormone secretion [Unknown]
  - Necrotising retinitis [Unknown]
  - Eye infection [Unknown]
  - Encephalitis [Unknown]
  - Herpes virus infection [Unknown]

NARRATIVE: CASE EVENT DATE: 2019
